FAERS Safety Report 6146360-5 (Version None)
Quarter: 2009Q2

REPORT INFORMATION
  Report Type: 
  Country: None (occurrence: None)
  Receive Date: 20090407
  Receipt Date: 20090326
  Transmission Date: 20091009
  Serious: Yes (Other)
  Sender: FDA-Public Use
  Company Number: JP-PFIZER INC-2009183993

PATIENT

DRUGS (5)
  1. ZOLOFT [Suspect]
     Dosage: 25 MG, 1X/DAY
     Route: 048
     Dates: start: 20090305
  2. ALL OTHER THERAPEUTIC PRODUCTS [Concomitant]
  3. ALFACALCIDOL [Concomitant]
  4. FAMOTIDINE [Concomitant]
  5. PANCREATIN [Concomitant]

REACTIONS (2)
  - DEHYDRATION [None]
  - INAPPROPRIATE ANTIDIURETIC HORMONE SECRETION [None]
